FAERS Safety Report 7553660-0 (Version None)
Quarter: 2011Q2

REPORT INFORMATION
  Report Type: 
  Country: None (occurrence: None)
  Receive Date: 20110617
  Receipt Date: 20110315
  Transmission Date: 20111010
  Serious: Yes (Other)
  Sender: FDA-Public Use
  Company Number: DE-BAYER-2011-014108

PATIENT
  Age: 66 Year
  Sex: Female
  Weight: 110 kg

DRUGS (1)
  1. CIPRO [Suspect]
     Indication: OSTEOMYELITIS
     Dosage: 500 MG, BID
     Dates: start: 20101015, end: 20110115

REACTIONS (5)
  - BLOOD IMMUNOGLOBULIN G DECREASED [None]
  - INFECTION SUSCEPTIBILITY INCREASED [None]
  - MUCOSAL INFECTION [None]
  - BLOOD IMMUNOGLOBULIN A DECREASED [None]
  - BLOOD IMMUNOGLOBULIN M DECREASED [None]
